FAERS Safety Report 5215248-6 (Version None)
Quarter: 2007Q1

REPORT INFORMATION
  Report Type: 
  Country: None (occurrence: None)
  Receive Date: 20070117
  Receipt Date: 20070109
  Transmission Date: 20070707
  Serious: Yes (Death, Other)
  Sender: FDA-Public Use
  Company Number: GXKR2007GB00619

PATIENT
  Age: 66 Year
  Sex: Male

DRUGS (18)
  1. DIAZEPAM [Suspect]
     Dosage: 4 MG, QD,
  2. OXYCONTIN [Suspect]
     Dosage: 40 MG, BID, ORAL
     Route: 048
  3. OXYCODONE HCL [Suspect]
     Indication: CANCER PAIN
     Dosage: ORAL
     Route: 048
     Dates: start: 20060616
  4. ZOPICLONE (ZOPICLONE) [Suspect]
     Dosage: 7.5 MG, QD,
  5. ASPIRIN [Concomitant]
  6. CAFFEINE (CAFFEINE) [Concomitant]
  7. CEFACLOR [Concomitant]
  8. DEXAMETHASONE TAB [Concomitant]
  9. DOCUSATE (DOCUSATE) [Concomitant]
  10. FUROSEMIDE [Concomitant]
  11. HALOPERIDOL [Concomitant]
  12. IPRATROPIUM BROMIDE [Concomitant]
  13. NYSTATIN [Concomitant]
  14. OMEPRAZOLE [Concomitant]
  15. ACETAMINOPHEN [Concomitant]
  16. SALBUTAMOL (SALBUTAMOL) [Concomitant]
  17. WARFARIN SODIUM [Concomitant]
  18. ZOPICLONE (ZOPICLONE) [Concomitant]

REACTIONS (4)
  - CONFUSIONAL STATE [None]
  - HALLUCINATION [None]
  - INSOMNIA [None]
  - LOWER RESPIRATORY TRACT INFECTION [None]
